FAERS Safety Report 4559788-1 (Version None)
Quarter: 2005Q1

REPORT INFORMATION
  Report Type: 
  Country: None (occurrence: None)
  Receive Date: 20050110
  Receipt Date: 20040708
  Transmission Date: 20050727
  Serious: Yes (Hospitalization)
  Sender: FDA-Public Use
  Company Number: US-JNJFOC-20040601418

PATIENT
  Age: 81 Year
  Sex: Male

DRUGS (4)
  1. IMODIUM A-D [Suspect]
     Indication: VIRAL INFECTION
     Dosage: 4 MG, 2 IN 1 DAY, ORAL
     Route: 048
     Dates: start: 20040526, end: 20040527
  2. CEPHALOSPORIN (CEPHALOSPORIN C) [Concomitant]
  3. PENTASA [Concomitant]
  4. FLOMAX [Concomitant]

REACTIONS (1)
  - CONSTIPATION [None]
